FAERS Safety Report 13336851 (Version 3)
Quarter: 2017Q3

REPORT INFORMATION
  Report Type: Spontaneous
  Country: US (occurrence: US)
  Receive Date: 20170315
  Receipt Date: 20170802
  Transmission Date: 20171127
  Serious: No
  Sender: FDA-Public Use
  Company Number: US-PFIZER INC-2017104881

PATIENT
  Age: 44 Year
  Sex: Female

DRUGS (1)
  1. XELJANZ [Suspect]
     Active Substance: TOFACITINIB CITRATE
     Indication: RHEUMATOID ARTHRITIS
     Dosage: 5 MG, 2X/DAY
     Route: 048
     Dates: start: 201704

REACTIONS (11)
  - Influenza [Recovered/Resolved]
  - Diarrhoea [Unknown]
  - Abdominal pain upper [Unknown]
  - Malaise [Recovered/Resolved]
  - Constipation [Unknown]
  - Decreased appetite [Unknown]
  - Abdominal distension [Unknown]
  - Pain [Unknown]
  - Intentional product misuse [Unknown]
  - Nausea [Unknown]
  - Abdominal discomfort [Unknown]
